FAERS Safety Report 17016686 (Version 2)
Quarter: 2019Q4

REPORT INFORMATION
  Report Type: Spontaneous
  Country: US (occurrence: US)
  Receive Date: 20191111
  Receipt Date: 20191125
  Transmission Date: 20200122
  Serious: No
  Sender: FDA-Public Use
  Company Number: US-009507513-1910USA017338

PATIENT
  Sex: Female

DRUGS (2)
  1. FOLLISTIM AQ [Suspect]
     Active Substance: FOLLITROPIN
     Dosage: 175 IU INTERNATIONAL UNIT(S)
     Route: 058
     Dates: start: 20191028, end: 20191028
  2. FOLLISTIM AQ [Suspect]
     Active Substance: FOLLITROPIN
     Dosage: 25 IU INTERNATIONAL UNIT(S)
     Route: 058
     Dates: start: 20191028

REACTIONS (2)
  - Device malfunction [Unknown]
  - Incorrect dose administered by device [Unknown]

NARRATIVE: CASE EVENT DATE: 20191028
